FAERS Safety Report 12851519 (Version 2)
Quarter: 2016Q4

REPORT INFORMATION
  Report Type: Spontaneous
  Country: US (occurrence: US)
  Receive Date: 20161017
  Receipt Date: 20161101
  Transmission Date: 20170207
  Serious: No
  Sender: FDA-Public Use
  Company Number: US-PFIZER INC-2016482961

PATIENT
  Sex: Female

DRUGS (2)
  1. ADVIL [Suspect]
     Active Substance: IBUPROFEN
  2. TRAMADOL. [Concomitant]
     Active Substance: TRAMADOL
     Dosage: 8 DF, DAILY

REACTIONS (1)
  - Insomnia [Unknown]
